FAERS Safety Report 23951338 (Version 1)
Quarter: 2024Q2

REPORT INFORMATION
  Report Type: Spontaneous
  Country: US (occurrence: US)
  Receive Date: 20240607
  Receipt Date: 20240607
  Transmission Date: 20240716
  Serious: No
  Sender: FDA-Public Use
  Company Number: US-MYLANLABS-2024M1038531

PATIENT
  Age: 61 Year
  Sex: Female
  Weight: 67.59 kg

DRUGS (1)
  1. WIXELA INHUB [Suspect]
     Active Substance: FLUTICASONE PROPIONATE\SALMETEROL XINAFOATE
     Indication: Asthma
     Dosage: 500 MICROGRAM, BID, (500/50 MICROGRAM), (TWICE A DAY)
     Route: 048

REACTIONS (5)
  - Illness [Unknown]
  - Blood pressure decreased [Unknown]
  - Dizziness [Unknown]
  - Fatigue [Unknown]
  - Product contamination [Unknown]
